FAERS Safety Report 7942956-6 (Version None)
Quarter: 2011Q4

REPORT INFORMATION
  Report Type: 
  Country: None (occurrence: None)
  Receive Date: 20111128
  Receipt Date: 20111117
  Transmission Date: 20120403
  Serious: Yes (Other)
  Sender: FDA-Public Use
  Company Number: CA-MERCK-1111USA02289

PATIENT
  Age: 80 Year
  Sex: Female
  Weight: 79 kg

DRUGS (12)
  1. FUROSEMIDE [Concomitant]
     Route: 065
  2. ASPIRIN [Concomitant]
     Route: 065
  3. BISOPROLOL [Concomitant]
     Route: 065
  4. ATORVASTATIN CALCIUM [Concomitant]
     Route: 065
  5. OXAZEPAM [Concomitant]
     Route: 065
  6. CANDESARTAN CILEXETIL AND FELODIPINE [Concomitant]
     Route: 065
  7. JANUMET [Suspect]
     Route: 048
  8. CALCIUM CARBONATE [Concomitant]
     Route: 065
  9. VITAMINS (UNSPECIFIED) [Concomitant]
     Route: 065
  10. GLICLAZIDE [Concomitant]
     Route: 065
  11. GLUCOSAMINE SULFATE [Concomitant]
     Route: 065
  12. RABEPRAZOLE SODIUM [Concomitant]
     Route: 065

REACTIONS (5)
  - PARAESTHESIA [None]
  - INSOMNIA [None]
  - NERVOUS SYSTEM DISORDER [None]
  - AGITATION [None]
  - PAIN OF SKIN [None]
